FAERS Safety Report 7551526-3 (Version None)
Quarter: 2011Q2

REPORT INFORMATION
  Report Type: 
  Country: None (occurrence: None)
  Receive Date: 20110616
  Receipt Date: 20110601
  Transmission Date: 20111010
  Serious: Yes (Other)
  Sender: FDA-Public Use
  Company Number: ES-JNJFOC-20110601353

PATIENT
  Age: 55 Year
  Sex: Male
  Weight: 81 kg

DRUGS (3)
  1. ACETAMINOPHEN [Concomitant]
  2. REMICADE [Suspect]
     Route: 042
     Dates: start: 20041201
  3. REMICADE [Suspect]
     Indication: ANKYLOSING SPONDYLITIS
     Route: 042
     Dates: end: 20110101

REACTIONS (1)
  - HERPES ZOSTER [None]
